FAERS Safety Report 24909343 (Version 1)
Quarter: 2025Q1

REPORT INFORMATION
  Report Type: Spontaneous
  Country: FR (occurrence: FR)
  Receive Date: 20250131
  Receipt Date: 20250131
  Transmission Date: 20250409
  Serious: Yes (Other)
  Sender: RANBAXY
  Company Number: FR-SUN PHARMACEUTICAL INDUSTRIES LTD-2025R1-491259

PATIENT
  Age: 54 Year

DRUGS (4)
  1. CISPLATIN [Suspect]
     Active Substance: CISPLATIN
     Indication: Adenocarcinoma gastric
     Route: 065
  2. DOCETAXEL [Suspect]
     Active Substance: DOCETAXEL
     Indication: Adenocarcinoma gastric
     Route: 065
  3. TINZAPARIN [Suspect]
     Active Substance: TINZAPARIN
     Indication: Anticoagulant therapy
     Dosage: 175 INTERNATIONAL UNIT/KILOGRAM, DAILY
     Route: 058
  4. FLUOROURACIL [Suspect]
     Active Substance: FLUOROURACIL
     Indication: Adenocarcinoma gastric
     Route: 065

REACTIONS (1)
  - Treatment failure [Unknown]
